FAERS Safety Report 20859543 (Version 2)
Quarter: 2022Q3

REPORT INFORMATION
  Report Type: Spontaneous
  Country: US (occurrence: None)
  Receive Date: 20220523
  Receipt Date: 20220715
  Transmission Date: 20221027
  Serious: No
  Sender: FDA-Public Use
  Company Number: 2022A186778

PATIENT
  Sex: Male
  Weight: 77.1 kg

DRUGS (1)
  1. SYMBICORT [Suspect]
     Active Substance: BUDESONIDE\FORMOTEROL FUMARATE DIHYDRATE
     Indication: Emphysema
     Dosage: 160/4.5 UG; DOSE: UNKNOWN
     Route: 055

REACTIONS (4)
  - Drug dose omission by device [Not Recovered/Not Resolved]
  - Device use issue [Not Recovered/Not Resolved]
  - Dyspnoea [Recovering/Resolving]
  - Device delivery system issue [Unknown]
